FAERS Safety Report 4630635-2 (Version None)
Quarter: 2005Q2

REPORT INFORMATION
  Report Type: 
  Country: None (occurrence: None)
  Receive Date: 20050405
  Receipt Date: 20050405
  Transmission Date: 20051028
  Serious: Yes (Death)
  Sender: FDA-Public Use
  Company Number: None

PATIENT
  Age: 78 Year
  Sex: Male

DRUGS (18)
  1. LINEZOLID [Suspect]
     Indication: URINARY TRACT INFECTION STAPHYLOCOCCAL
     Dosage: 600MG, Q12H, PO
     Route: 048
     Dates: start: 20041207, end: 20041213
  2. ALBUTEROL [Concomitant]
  3. ALPRAZOLAM [Concomitant]
  4. ASPIRIN [Concomitant]
  5. BISOCODYL [Concomitant]
  6. M.V.I. [Concomitant]
  7. NTGSL [Concomitant]
  8. OMEPRAZOLE [Concomitant]
  9. CALCITRATE [Concomitant]
  10. CLOPIDOGREL [Concomitant]
  11. LOVENOX [Concomitant]
  12. FOLIC ACID [Concomitant]
  13. SIMVASTATIN [Concomitant]
  14. FUROSEMIDE [Concomitant]
  15. IPRATROPIUM BROMIDE [Concomitant]
  16. ISMONONITRATE [Concomitant]
  17. LISINOPRIL [Concomitant]
  18. METOCLOPRAMIDE [Concomitant]

REACTIONS (4)
  - HAEMORRHAGE [None]
  - MYOCARDIAL INFARCTION [None]
  - PETECHIAE [None]
  - THROMBOCYTOPENIA [None]
